FAERS Safety Report 7779402-1 (Version None)
Quarter: 2011Q3

REPORT INFORMATION
  Report Type: 
  Country: None (occurrence: None)
  Receive Date: 20110927
  Receipt Date: 20090716
  Transmission Date: 20111222
  Serious: No
  Sender: FDA-Public Use
  Company Number: 2009BI022271

PATIENT
  Age: 36 Year
  Sex: Female

DRUGS (1)
  1. TYSABRI [Suspect]
     Indication: MULTIPLE SCLEROSIS
     Route: 042
     Dates: start: 20090619

REACTIONS (14)
  - ABDOMINAL DISCOMFORT [None]
  - DRUG INEFFECTIVE [None]
  - SKIN ULCER [None]
  - WEIGHT INCREASED [None]
  - SALIVARY HYPERSECRETION [None]
  - FATIGUE [None]
  - NAUSEA [None]
  - HYPOAESTHESIA [None]
  - FALL [None]
  - FUNGAL INFECTION [None]
  - POOR VENOUS ACCESS [None]
  - URINARY TRACT INFECTION [None]
  - HEADACHE [None]
  - DIZZINESS [None]
